FAERS Safety Report 12255378 (Version 3)
Quarter: 2016Q2

REPORT INFORMATION
  Report Type: Report from Study
  Country: JP (occurrence: JP)
  Receive Date: 20160412
  Receipt Date: 20160530
  Transmission Date: 20160815
  Serious: Yes (Disabling, Other)
  Sender: FDA-Public Use
  Company Number: JP-VIFOR (INTERNATIONAL) INC.-VIT-2016-01498

PATIENT
  Age: 60 Year
  Sex: Female

DRUGS (14)
  1. MIRCERA [Suspect]
     Active Substance: METHOXY POLYETHYLENE GLYCOL-EPOETIN BETA
     Route: 042
     Dates: start: 20140722, end: 20140916
  2. DIART [Concomitant]
     Active Substance: AZOSEMIDE
     Indication: DIABETIC NEPHROPATHY
     Route: 048
     Dates: end: 20140708
  3. LIPITOR [Concomitant]
     Active Substance: ATORVASTATIN CALCIUM
     Route: 048
  4. FEBURIC [Concomitant]
     Active Substance: FEBUXOSTAT
     Route: 048
  5. AIMIX [Concomitant]
     Active Substance: AMLODIPINE BESYLATE\IRBESARTAN
     Route: 048
  6. DIART [Concomitant]
     Active Substance: AZOSEMIDE
     Route: 048
     Dates: start: 20140709
  7. MIRCERA [Suspect]
     Active Substance: METHOXY POLYETHYLENE GLYCOL-EPOETIN BETA
     Route: 042
     Dates: start: 20141211, end: 20141211
  8. MIRCERA [Suspect]
     Active Substance: METHOXY POLYETHYLENE GLYCOL-EPOETIN BETA
     Route: 042
     Dates: start: 20141225, end: 20141225
  9. FESIN [Concomitant]
     Active Substance: IRON SUCROSE
     Route: 042
     Dates: start: 20130902, end: 20140204
  10. MIRCERA [Suspect]
     Active Substance: METHOXY POLYETHYLENE GLYCOL-EPOETIN BETA
     Route: 042
     Dates: start: 20131111, end: 20140708
  11. TRAZENTA [Concomitant]
     Active Substance: LINAGLIPTIN
     Route: 048
  12. ARTIST [Concomitant]
     Active Substance: CARVEDILOL
     Route: 048
  13. MIRCERA [Suspect]
     Active Substance: METHOXY POLYETHYLENE GLYCOL-EPOETIN BETA
     Indication: NEPHROGENIC ANAEMIA
     Route: 042
     Dates: start: 20130902, end: 20131030
  14. DETANTOL [Concomitant]
     Route: 048

REACTIONS (3)
  - Renal impairment [Recovered/Resolved with Sequelae]
  - Haemodialysis [Recovered/Resolved]
  - Hyperkalaemia [Recovered/Resolved]

NARRATIVE: CASE EVENT DATE: 20140902
